FAERS Safety Report 4314283-X (Version None)
Quarter: 2004Q1

REPORT INFORMATION
  Report Type: 
  Country: None (occurrence: None)
  Receive Date: 20040309
  Receipt Date: 20040226
  Transmission Date: 20041129
  Serious: Yes (Hospitalization)
  Sender: FDA-Public Use
  Company Number: PHBS2004IN02794

PATIENT
  Age: 32 Year
  Sex: Female

DRUGS (7)
  1. NEORAL [Suspect]
     Indication: RENAL TRANSPLANT
     Dosage: 8 MG/KG/D
     Route: 048
  2. NEORAL [Suspect]
     Dosage: 4 MG/KG/D
     Route: 048
  3. NEORAL [Suspect]
     Dosage: 2 MG/KG/D
     Route: 048
  4. SIMULECT [Concomitant]
     Indication: RENAL TRANSPLANT
     Route: 065
  5. AZATHIOPRINE [Suspect]
     Indication: RENAL TRANSPLANT
  6. PREDNISOLONE [Concomitant]
     Indication: RENAL TRANSPLANT
  7. ANTIHYPERTENSIVES [Concomitant]

REACTIONS (2)
  - LEUKOPENIA [None]
  - RENAL CORTICAL NECROSIS [None]
